FAERS Safety Report 14820292 (Version 2)
Quarter: 2018Q2

REPORT INFORMATION
  Report Type: Report from Study
  Country: DE (occurrence: DE)
  Receive Date: 20180427
  Receipt Date: 20180523
  Transmission Date: 20180711
  Serious: Yes (Hospitalization)
  Sender: FDA-Public Use
  Company Number: PHHY2018DE070658

PATIENT
  Age: 50 Year
  Sex: Male
  Weight: 125 kg

DRUGS (1)
  1. COSENTYX [Suspect]
     Active Substance: SECUKINUMAB
     Indication: PSORIASIS
     Dosage: 300 MG, UNK (PER APPLICATION)
     Route: 058
     Dates: start: 20151014

REACTIONS (1)
  - Abscess sweat gland [Recovering/Resolving]

NARRATIVE: CASE EVENT DATE: 20180328
